FAERS Safety Report 4796803-4 (Version None)
Quarter: 2005Q3

REPORT INFORMATION
  Report Type: 
  Country: None (occurrence: None)
  Receive Date: 20050916
  Receipt Date: 20050628
  Transmission Date: 20060218
  Serious: Yes (Hospitalization)
  Sender: FDA-Public Use
  Company Number: US-JNJFOC-20050504215

PATIENT
  Age: 43 Year
  Sex: Female

DRUGS (4)
  1. TOPAMAX [Suspect]
     Indication: EPILEPSY
     Dosage: ORAL; 200 MG, 4 IN 1 DAY, ORAL
     Route: 048
     Dates: start: 20020101, end: 20020101
  2. TOPAMAX [Suspect]
     Indication: EPILEPSY
     Dosage: ORAL; 200 MG, 4 IN 1 DAY, ORAL
     Route: 048
     Dates: start: 20020101
  3. KLONOPIN [Concomitant]
  4. TEGRETOL (CARBAMAZAPINE) TABLETS [Concomitant]

REACTIONS (1)
  - SUICIDAL IDEATION [None]
